FAERS Safety Report 25871167 (Version 1)
Quarter: 2025Q4

REPORT INFORMATION
  Report Type: Spontaneous
  Country: US (occurrence: US)
  Receive Date: 20251001
  Receipt Date: 20251001
  Transmission Date: 20260117
  Serious: No
  Sender: GALDERMA
  Company Number: US-GALDERMA-US2025017128

PATIENT

DRUGS (2)
  1. NEMLUVIO [Suspect]
     Active Substance: NEMOLIZUMAB-ILTO
     Indication: Dermatitis atopic
     Dosage: 60 MILLIGRAM, LOADING DOSE
     Route: 058
     Dates: start: 202506, end: 202506
  2. NEMLUVIO [Suspect]
     Active Substance: NEMOLIZUMAB-ILTO
     Dosage: 30 MILLIGRAM
     Route: 058
     Dates: start: 202507, end: 202507

REACTIONS (7)
  - Skin exfoliation [Unknown]
  - Skin weeping [Unknown]
  - Chills [Unknown]
  - Product prescribing error [Recovered/Resolved]
  - Prescribed overdose [Recovered/Resolved]
  - Device leakage [Recovered/Resolved]
  - Product dose omission issue [Recovered/Resolved]

NARRATIVE: CASE EVENT DATE: 20250101
